FAERS Safety Report 16225036 (Version 10)
Quarter: 2020Q3

REPORT INFORMATION
  Report Type: Spontaneous
  Country: US (occurrence: JP)
  Receive Date: 20190422
  Receipt Date: 20200921
  Transmission Date: 20201102
  Serious: Yes (Death, Hospitalization, Other)
  Sender: FDA-Public Use
  Company Number: JP-009507513-1904JPN001477J

PATIENT
  Age: 73 Year
  Sex: Male
  Weight: 56.99 kg

DRUGS (12)
  1. RESLIN TABLETS 25 [Suspect]
     Active Substance: TRAZODONE HYDROCHLORIDE
     Dosage: 25 MILLIGRAM, QD
     Route: 048
     Dates: end: 20190330
  2. EMEND [Suspect]
     Active Substance: APREPITANT
     Dosage: 80 MILLIGRAM, TWICE Q3Q
     Route: 065
     Dates: start: 20190316, end: 20190317
  3. LORATADINE. [Suspect]
     Active Substance: LORATADINE
     Indication: PRODUCT USED FOR UNKNOWN INDICATION
     Dosage: 10 MILLIGRAM, QD
     Route: 048
     Dates: end: 20190330
  4. JANUVIA [Suspect]
     Active Substance: SITAGLIPTIN PHOSPHATE
     Dosage: 25 MILLIGRAM, QD
     Route: 048
     Dates: end: 20190330
  5. MAGNESIUM OXIDE. [Suspect]
     Active Substance: MAGNESIUM OXIDE
     Dosage: 330 MG, TID
     Route: 048
     Dates: end: 20190330
  6. TAKECAB [Suspect]
     Active Substance: VONOPRAZAN FUMARATE
     Dosage: 10 MG, QD
     Route: 048
     Dates: end: 20190330
  7. PACLITAXEL. [Suspect]
     Active Substance: PACLITAXEL
     Indication: NON-SMALL CELL LUNG CANCER
     Dosage: 163.4 MG, OW
     Route: 041
     Dates: start: 20190315, end: 20190322
  8. CARBOPLATIN. [Suspect]
     Active Substance: CARBOPLATIN
     Indication: NON-SMALL CELL LUNG CANCER
     Dosage: 597.6 MG, Q3WK
     Route: 041
     Dates: start: 20190315, end: 20190315
  9. QUAZEPAM. [Suspect]
     Active Substance: QUAZEPAM
     Indication: PRODUCT USED FOR UNKNOWN INDICATION
     Dosage: 15 MG, QD
     Route: 048
     Dates: end: 20190330
  10. KEYTRUDA [Suspect]
     Active Substance: PEMBROLIZUMAB
     Indication: NON-SMALL CELL LUNG CANCER
     Dosage: 200 MILLIGRAM, Q3W
     Route: 041
     Dates: start: 20190315, end: 20190315
  11. EMEND [Suspect]
     Active Substance: APREPITANT
     Indication: NON-SMALL CELL LUNG CANCER
     Dosage: 125 MILLIGRAM, Q3W
     Route: 065
     Dates: start: 20190315, end: 20190315
  12. SULBACILLIN [Concomitant]
     Active Substance: AMPICILLIN SODIUM\SULBACTAM SODIUM
     Indication: INFECTION
     Dosage: 3 G, TID
     Route: 041
     Dates: start: 20190328, end: 20190401

REACTIONS (2)
  - Interstitial lung disease [Fatal]
  - Somnolence [Fatal]

NARRATIVE: CASE EVENT DATE: 20190328
